FAERS Safety Report 19177277 (Version 1)
Quarter: 2021Q2

REPORT INFORMATION
  Report Type: Spontaneous
  Country: US (occurrence: US)
  Receive Date: 20210425
  Receipt Date: 20210425
  Transmission Date: 20210717
  Serious: No
  Sender: FDA-Public Use
  Company Number: US-GLAXOSMITHKLINE-USCH2021AMR020856

PATIENT
  Age: 27 Year
  Sex: Female
  Weight: 49.9 kg

DRUGS (1)
  1. ADVIL [Suspect]
     Active Substance: IBUPROFEN
     Indication: PAIN
     Dosage: UNK

REACTIONS (9)
  - Pain in extremity [Recovering/Resolving]
  - Rash [Unknown]
  - Anxiety [Unknown]
  - Initial insomnia [Unknown]
  - Feeling hot [Recovering/Resolving]
  - Taste disorder [Unknown]
  - Urticaria [Unknown]
  - Erythema [Unknown]
  - Product storage error [Unknown]
